FAERS Safety Report 25682454 (Version 1)
Quarter: 2025Q3

REPORT INFORMATION
  Report Type: Spontaneous
  Country: US (occurrence: US)
  Receive Date: 20250814
  Receipt Date: 20250814
  Transmission Date: 20251020
  Serious: No
  Sender: VERTEX
  Company Number: US-VERTEX PHARMACEUTICALS-2025-013288

PATIENT
  Age: 32 Year
  Sex: Female

DRUGS (4)
  1. JOURNAVX [Suspect]
     Active Substance: SUZETRIGINE
     Indication: Pain
     Route: 048
     Dates: start: 20250801
  2. VITAMIN D [Concomitant]
     Active Substance: VITAMIN D NOS
  3. MELOXICAM [Concomitant]
     Active Substance: MELOXICAM
  4. Lotrimin [Concomitant]
     Indication: Hormonal contraception

REACTIONS (1)
  - Constipation [Not Recovered/Not Resolved]

NARRATIVE: CASE EVENT DATE: 20250801
